FAERS Safety Report 6083315-3 (Version None)
Quarter: 2009Q1

REPORT INFORMATION
  Report Type: 
  Country: None (occurrence: None)
  Receive Date: 20090217
  Receipt Date: 20090204
  Transmission Date: 20090719
  Serious: Yes (Hospitalization, Other)
  Sender: FDA-Public Use
  Company Number: 2009AP000446

PATIENT
  Age: 91 Year
  Sex: Female

DRUGS (8)
  1. AMIODARONE HCL [Suspect]
     Indication: ATRIAL FIBRILLATION
     Dosage: 400 MG; QD, 200 MG; QD
  2. WARFARIN [Concomitant]
  3. FUROSEMIDE [Concomitant]
  4. METOPROLOL [Concomitant]
  5. ACETYLSALICYLIC ACID SRT [Concomitant]
  6. PRAVASTATIN [Concomitant]
  7. LEVOTHYROXINE SODIUM [Concomitant]
  8. DONEPEZIL HCL [Concomitant]

REACTIONS (14)
  - BLOOD PRESSURE DIASTOLIC DECREASED [None]
  - BLOOD THYROID STIMULATING HORMONE INCREASED [None]
  - BODY TEMPERATURE DECREASED [None]
  - BRADYPHRENIA [None]
  - CARDIAC MURMUR [None]
  - CONFUSIONAL STATE [None]
  - DISORIENTATION [None]
  - DIZZINESS [None]
  - DRUG TOXICITY [None]
  - HEART RATE DECREASED [None]
  - LETHARGY [None]
  - NERVOUS SYSTEM DISORDER [None]
  - OXYGEN SATURATION DECREASED [None]
  - SOMNOLENCE [None]
